FAERS Safety Report 6976425-7 (Version None)
Quarter: 2010Q3

REPORT INFORMATION
  Report Type: 
  Country: None (occurrence: None)
  Receive Date: 20100910
  Receipt Date: 20100830
  Transmission Date: 20110219
  Serious: Yes (Death, Hospitalization)
  Sender: FDA-Public Use
  Company Number: US-JNJFOC-20091200998

PATIENT
  Sex: Female
  Weight: 43.09 kg

DRUGS (2)
  1. REMICADE [Suspect]
     Indication: CROHN'S DISEASE
     Dosage: 1 INFUSION PRIOR TO BASELINE
     Route: 042
  2. ADALIMUMAB [Concomitant]
     Indication: CROHN'S DISEASE

REACTIONS (3)
  - HEPATIC FAILURE [None]
  - PNEUMONIA [None]
  - RENAL FAILURE [None]
